FAERS Safety Report 9681986 (Version 2)
Quarter: 2013Q4

REPORT INFORMATION
  Report Type: Spontaneous
  Country: US (occurrence: US)
  Receive Date: 20131111
  Receipt Date: 20131111
  Transmission Date: 20140711
  Serious: Yes (Other)
  Sender: FDA-Public Use
  Company Number: US-PFIZER INC-2013319148

PATIENT
  Age: 73 Year
  Sex: Female
  Weight: 73.47 kg

DRUGS (3)
  1. CELEBREX [Suspect]
     Indication: RHEUMATOID ARTHRITIS
     Dosage: 200 MG, 1X/DAY
     Route: 048
     Dates: start: 2009
  2. PROVENTIL HFA [Concomitant]
     Indication: DYSPNOEA
     Dosage: 90 MG, AS NEEDED
  3. PROVENTIL HFA [Concomitant]
     Indication: NASOPHARYNGITIS

REACTIONS (3)
  - Leukaemia [Unknown]
  - Rheumatoid arthritis [Unknown]
  - White blood cell count decreased [Unknown]
